FAERS Safety Report 11497263 (Version 10)
Quarter: 2019Q4

REPORT INFORMATION
  Report Type: Report from Study
  Country: US (occurrence: US)
  Receive Date: 20150911
  Receipt Date: 20191017
  Transmission Date: 20200122
  Serious: Yes (Hospitalization)
  Sender: FDA-Public Use
  Company Number: US-PFIZER INC-2015299324

PATIENT
  Age: 9 Year
  Sex: Male
  Weight: 40 kg

DRUGS (6)
  1. DESVENLAFAXINE SUCCINATE MONOHYDRATE [Suspect]
     Active Substance: DESVENLAFAXINE SUCCINATE
     Dosage: 35 MG, 1X/DAY
     Route: 048
     Dates: start: 20150723, end: 20150803
  2. ZYRTEC [Concomitant]
     Active Substance: CETIRIZINE HYDROCHLORIDE
     Indication: HYPERSENSITIVITY
     Dosage: 10 MG, PRN (AS NEEDED)
     Route: 048
     Dates: start: 200704
  3. DESVENLAFAXINE SUCCINATE MONOHYDRATE [Suspect]
     Active Substance: DESVENLAFAXINE SUCCINATE
     Dosage: 10 MG, 1X/DAY
     Route: 048
     Dates: start: 20150907, end: 20150911
  4. DESVENLAFAXINE SUCCINATE MONOHYDRATE [Suspect]
     Active Substance: DESVENLAFAXINE SUCCINATE
     Indication: DEPRESSION
     Dosage: 25 MG, 1X/DAY
     Route: 048
     Dates: start: 20150708, end: 20150722
  5. DESVENLAFAXINE SUCCINATE MONOHYDRATE [Suspect]
     Active Substance: DESVENLAFAXINE SUCCINATE
     Dosage: 25 MG, 1X/DAY
     Route: 048
     Dates: start: 20150804, end: 20150903
  6. DESVENLAFAXINE SUCCINATE MONOHYDRATE [Suspect]
     Active Substance: DESVENLAFAXINE SUCCINATE
     Dosage: 20 MG, 1X/DAY
     Route: 048
     Dates: start: 20150905, end: 20150906

REACTIONS (5)
  - Agitation [Recovered/Resolved]
  - Pyromania [Recovered/Resolved]
  - Condition aggravated [Recovered/Resolved]
  - Initial insomnia [Recovered/Resolved]
  - Hallucination, auditory [Recovered/Resolved]

NARRATIVE: CASE EVENT DATE: 20150820
